FAERS Safety Report 9998954 (Version 1)
Quarter: 2014Q1

REPORT INFORMATION
  Report Type: Report from Study
  Country: US (occurrence: US)
  Receive Date: 20140312
  Receipt Date: 20140312
  Transmission Date: 20141002
  Serious: Yes (Hospitalization, Congenital Anomaly, Other)
  Sender: FDA-Public Use
  Company Number: US-ALEXION PHARMACEUTICALS INC.-A201400717

PATIENT
  Sex: Female

DRUGS (11)
  1. SOLIRIS [Suspect]
     Indication: HAEMOLYTIC URAEMIC SYNDROME
     Dosage: 1200 MG, QW
     Route: 042
     Dates: start: 20130702
  2. HYDROMORPHONE [Concomitant]
     Indication: PAIN MANAGEMENT
     Dosage: 2 MG, SINGLE
     Route: 042
     Dates: start: 20130812, end: 20130812
  3. CEFTRIAXONE [Concomitant]
     Dosage: 1 G, BID
     Dates: start: 20130812, end: 20130815
  4. AMLODIPINE [Concomitant]
     Indication: HYPERTENSION
     Dosage: 10 MG, QD
     Dates: start: 20130812
  5. ATENOLOL [Concomitant]
     Indication: HYPERTENSION
     Dosage: 25 MG, QD
     Dates: start: 20130812
  6. CLONIDINE [Concomitant]
     Indication: HYPERTENSION
     Dosage: 0.2 MG, TID
     Dates: start: 20130812
  7. HEPARIN [Concomitant]
     Indication: ANTICOAGULANT THERAPY
     Dosage: UNK, BID
     Route: 058
     Dates: start: 20130812
  8. HYDRALAZINE [Concomitant]
     Indication: HYPERTENSION
     Dosage: 50 MG, TID
     Dates: start: 20130812
  9. MIRTAZAPINE [Concomitant]
     Dosage: 15 UNK, UNK
     Dates: start: 20130812
  10. VANCOMYCIN [Concomitant]
     Dosage: UNK
     Dates: start: 20140106
  11. CEFTAZIDIME [Concomitant]
     Dosage: UNK
     Dates: start: 20140110

REACTIONS (5)
  - Heart disease congenital [Unknown]
  - Dyspnoea [Unknown]
  - Blood pressure increased [Unknown]
  - Chest pain [Unknown]
  - Platelet count decreased [Unknown]
